FAERS Safety Report 12691855 (Version 1)
Quarter: 2016Q3

REPORT INFORMATION
  Report Type: Other
  Country: GB (occurrence: US)
  Receive Date: 20160827
  Receipt Date: 20160827
  Transmission Date: 20161109
  Serious: Yes (Hospitalization, Other)
  Sender: FDA-Public Use
  Company Number: US-INTERNATIONAL MEDICATION SYSTEMS, LIMITED-1056803

PATIENT
  Age: 63 Year
  Sex: Male

DRUGS (1)
  1. MORPHINE [Suspect]
     Active Substance: MORPHINE
     Indication: OVERDOSE

REACTIONS (4)
  - Acute kidney injury [Recovered/Resolved]
  - Leukoencephalopathy [Recovering/Resolving]
  - Overdose [Recovered/Resolved]
  - Pneumonia aspiration [Recovered/Resolved]
